FAERS Safety Report 14506931 (Version 4)
Quarter: 2018Q2

REPORT INFORMATION
  Report Type: Report from Study
  Country: US (occurrence: US)
  Receive Date: 20180208
  Receipt Date: 20180501
  Transmission Date: 20180711
  Serious: Yes (Other)
  Sender: FDA-Public Use
  Company Number: PHEH2018US004361

PATIENT
  Sex: Female

DRUGS (1)
  1. GILENYA [Suspect]
     Active Substance: FINGOLIMOD HYDROCHLORIDE
     Indication: PRODUCT USED FOR UNKNOWN INDICATION
     Dosage: 0.5 MG, QD
     Route: 048
     Dates: start: 20170723

REACTIONS (9)
  - Fatigue [Unknown]
  - Leukopenia [Unknown]
  - Cataract [Unknown]
  - Decreased appetite [Unknown]
  - Asthenia [Unknown]
  - Amnesia [Unknown]
  - Red blood cell count decreased [Unknown]
  - Confusional state [Unknown]
  - Dyspnoea [Unknown]
